FAERS Safety Report 18411782 (Version 1)
Quarter: 2020Q4

REPORT INFORMATION
  Report Type: Spontaneous
  Country: US (occurrence: US)
  Receive Date: 20201021
  Receipt Date: 20201021
  Transmission Date: 20210114
  Serious: No
  Sender: FDA-Public Use
  Company Number: US-JNJFOC-A-US2020-207873

PATIENT
  Age: 51 Year
  Sex: Female

DRUGS (2)
  1. UPTRAVI [Suspect]
     Active Substance: SELEXIPAG
     Dosage: 100 MCG IN AM, 200 MCG IN PM
     Route: 048
     Dates: start: 202007
  2. UPTRAVI [Suspect]
     Active Substance: SELEXIPAG
     Indication: PULMONARY ARTERIAL HYPERTENSION
     Dosage: 200 MCG, BID
     Route: 048
     Dates: start: 20200716, end: 20200803

REACTIONS (12)
  - Headache [Unknown]
  - Ear pain [Recovering/Resolving]
  - Muscle spasms [Unknown]
  - Diarrhoea [Recovering/Resolving]
  - Pain in extremity [Unknown]
  - Pain in jaw [Unknown]
  - Neck pain [Recovering/Resolving]
  - Paraesthesia [Unknown]
  - Nausea [Recovering/Resolving]
  - Unevaluable event [Recovering/Resolving]
  - Scratch [Recovering/Resolving]
  - Pain [Recovering/Resolving]

NARRATIVE: CASE EVENT DATE: 202007
